FAERS Safety Report 24105227 (Version 1)
Quarter: 2024Q3

REPORT INFORMATION
  Report Type: Spontaneous
  Country: US (occurrence: US)
  Receive Date: 20240717
  Receipt Date: 20240717
  Transmission Date: 20241016
  Serious: Yes (Hospitalization)
  Sender: AMGEN
  Company Number: US-AMGEN-USASP2024139658

PATIENT
  Sex: Female

DRUGS (1)
  1. REPATHA [Suspect]
     Active Substance: EVOLOCUMAB
     Indication: Product used for unknown indication
     Dosage: 140 MILLIGRAM, Q2WK (EVERY 2 WEEKS)
     Route: 065
     Dates: start: 2019

REACTIONS (4)
  - Staphylococcal infection [Unknown]
  - Sepsis [Unknown]
  - Device difficult to use [Unknown]
  - Drug dose omission by device [Unknown]
